FAERS Safety Report 7063076-1 (Version None)
Quarter: 2010Q4

REPORT INFORMATION
  Report Type: 
  Country: None (occurrence: None)
  Receive Date: 20101026
  Receipt Date: 20100409
  Transmission Date: 20110411
  Serious: No
  Sender: FDA-Public Use
  Company Number: US-PFIZER INC-2010046002

PATIENT
  Sex: Female
  Weight: 53.515 kg

DRUGS (6)
  1. LIPITOR [Suspect]
     Indication: SHUNT OCCLUSION
     Dosage: 80 MG, DAILY
     Route: 048
     Dates: start: 20100223
  2. ACETYLSALICYLIC ACID [Concomitant]
     Dosage: UNK
  3. PLAVIX [Concomitant]
     Dosage: UNK
  4. PROTONIX [Concomitant]
     Dosage: UNK
  5. METOPROLOL [Concomitant]
     Dosage: UNK
  6. LISINOPRIL [Concomitant]
     Dosage: UNK

REACTIONS (2)
  - FATIGUE [None]
  - SKIN DISORDER [None]
